FAERS Safety Report 4786903-7 (Version None)
Quarter: 2005Q3

REPORT INFORMATION
  Report Type: 
  Country: None (occurrence: None)
  Receive Date: 20050930
  Receipt Date: 20050915
  Transmission Date: 20060218
  Serious: Yes (Hospitalization, Other)
  Sender: FDA-Public Use
  Company Number: 2005-0008654

PATIENT
  Age: 34 Year
  Sex: Male
  Weight: 71.6683 kg

DRUGS (7)
  1. TRUVADA [Suspect]
     Indication: HIV INFECTION
     Dosage: 500 MG, 1 IN 1 D, ORAL
     Route: 048
     Dates: start: 20050513, end: 20050808
  2. BLINDED UK-427, 857 [Suspect]
     Indication: HIV INFECTION
     Dosage: 500 MG, 1 IN 1 D, ORAL
     Route: 048
     Dates: start: 20050513, end: 20050808
  3. BLINDED EFAVIRENZ (EFAVIRENZ) [Suspect]
     Indication: HIV INFECTION
     Dates: start: 20050425, end: 20050808
  4. COMBIVIR [Concomitant]
  5. LIPITOR [Concomitant]
  6. LORATADINE [Concomitant]
  7. FAMOTIDINE [Concomitant]

REACTIONS (7)
  - ASTHENIA [None]
  - HYPERLACTACIDAEMIA [None]
  - JUVENILE ARTHRITIS [None]
  - MYALGIA [None]
  - PYREXIA [None]
  - RASH ERYTHEMATOUS [None]
  - VIRAL INFECTION [None]
